FAERS Safety Report 10027827 (Version 2)
Quarter: 2014Q1

REPORT INFORMATION
  Report Type: Spontaneous
  Country: AU (occurrence: AU)
  Receive Date: 20140321
  Receipt Date: 20140328
  Transmission Date: 20141002
  Serious: Yes (Life-Threatening)
  Sender: FDA-Public Use
  Company Number: AU-ABBVIE-14P-008-1213801-00

PATIENT
  Age: 27 Year
  Sex: Female
  Weight: 115 kg

DRUGS (5)
  1. ULTANE [Suspect]
     Indication: PRODUCT USED FOR UNKNOWN INDICATION
  2. BRAUER NATURAL MEDICINE ARNICA (HERBAL MEDICINES) [Interacting]
     Indication: PRODUCT USED FOR UNKNOWN INDICATION
     Dosage: DOSE UNSPEC DAILY
  3. FENTANYL [Suspect]
     Indication: PRODUCT USED FOR UNKNOWN INDICATION
  4. PROPOFOL [Suspect]
     Indication: PRODUCT USED FOR UNKNOWN INDICATION
  5. ORAL CONTRACEPTIVE NOS [Suspect]
     Indication: PRODUCT USED FOR UNKNOWN INDICATION

REACTIONS (2)
  - Respiratory paralysis [Recovered/Resolved]
  - Drug interaction [Unknown]
